FAERS Safety Report 4554794-5 (Version None)
Quarter: 2004Q4

REPORT INFORMATION
  Report Type: 
  Country: None (occurrence: None)
  Receive Date: 20041227
  Receipt Date: 20040813
  Transmission Date: 20050328
  Serious: No
  Sender: FDA-Public Use
  Company Number: 2004-0007368

PATIENT
  Age: 56 Year
  Sex: Male

DRUGS (9)
  1. VIREAD [Suspect]
     Indication: HIV INFECTION
     Dates: start: 20040701
  2. KALETRA [Concomitant]
  3. SUSTIVA [Concomitant]
  4. FLUCONAZOLE [Concomitant]
  5. AZMACORT [Concomitant]
  6. COMBIVENT [Concomitant]
  7. ATENOLOL [Concomitant]
  8. NEURONTIN [Concomitant]
  9. COLACE (DOCUSATE SODIUM) [Concomitant]

REACTIONS (2)
  - BLOOD CREATINE PHOSPHOKINASE INCREASED [None]
  - MUSCLE CRAMP [None]
